FAERS Safety Report 19186021 (Version 1)
Quarter: 2021Q2

REPORT INFORMATION
  Report Type: Spontaneous
  Country: US (occurrence: US)
  Receive Date: 20210427
  Receipt Date: 20210427
  Transmission Date: 20210717
  Serious: No
  Sender: FDA-Public Use
  Company Number: US-TEVA-2021-US-1904935

PATIENT
  Age: 69 Year
  Sex: Female
  Weight: 42.6 kg

DRUGS (2)
  1. RISENDRONATE [Suspect]
     Active Substance: RISEDRONIC ACID
     Route: 065
  2. TOPROL XL [Concomitant]
     Active Substance: METOPROLOL SUCCINATE
     Indication: HEART RATE
     Dates: start: 2018

REACTIONS (3)
  - Diarrhoea [Unknown]
  - Dehydration [Unknown]
  - Heart rate abnormal [Unknown]
